FAERS Safety Report 11304050 (Version 1)
Quarter: 2015Q3

REPORT INFORMATION
  Report Type: Spontaneous
  Country: US (occurrence: US)
  Receive Date: 20150723
  Receipt Date: 20150723
  Transmission Date: 20151125
  Serious: No
  Sender: FDA-Public Use
  Company Number: US-JNJFOC-20150402974

PATIENT
  Age: 59 Year
  Sex: Female
  Weight: 106.6 kg

DRUGS (1)
  1. PEPCID AC MAXIMUM STRENGTH [Suspect]
     Active Substance: FAMOTIDINE
     Indication: HYPERCHLORHYDRIA
     Dosage: 20MG PER TABLET, 2 TABLETS, 3 TO 4 TIMES A WEEK
     Route: 048

REACTIONS (3)
  - Therapeutic response delayed [Unknown]
  - Incorrect dose administered [Unknown]
  - Inappropriate schedule of drug administration [Unknown]
